FAERS Safety Report 4622596-7 (Version None)
Quarter: 2005Q1

REPORT INFORMATION
  Report Type: 
  Country: None (occurrence: None)
  Receive Date: 20050330
  Receipt Date: 20050318
  Transmission Date: 20050727
  Serious: Yes (Hospitalization)
  Sender: FDA-Public Use
  Company Number: DE-JNJFOC-20050304841

PATIENT
  Sex: Female

DRUGS (1)
  1. TOPIRAMATE [Suspect]
     Indication: EPILEPSY
     Route: 049

REACTIONS (1)
  - CARPAL TUNNEL SYNDROME [None]
